FAERS Safety Report 4900223-9 (Version None)
Quarter: 2006Q1

REPORT INFORMATION
  Report Type: 
  Country: None (occurrence: None)
  Receive Date: 20060203
  Receipt Date: 20051123
  Transmission Date: 20060701
  Serious: Yes (Other)
  Sender: FDA-Public Use
  Company Number: A01200508289

PATIENT
  Age: 85 Year
  Sex: Male

DRUGS (10)
  1. ARIXTRA [Suspect]
     Indication: DEEP VEIN THROMBOSIS
     Dosage: 2.5MG PER DAY
     Route: 058
     Dates: start: 20051115
  2. PLAVIX [Concomitant]
  3. PROTONIX [Concomitant]
  4. HYDROCODONE BITARTRATE [Concomitant]
  5. NORVASC [Concomitant]
  6. TIMOPTIC [Concomitant]
  7. XALATAN [Concomitant]
  8. TRAMADOL [Concomitant]
  9. VITORIN [Concomitant]
  10. SANCTURA [Concomitant]

REACTIONS (1)
  - HAEMORRHAGE [None]
